FAERS Safety Report 20449836 (Version 2)
Quarter: 2022Q2

REPORT INFORMATION
  Report Type: Spontaneous
  Country: US (occurrence: US)
  Receive Date: 20220209
  Receipt Date: 20220510
  Transmission Date: 20220721
  Serious: Yes (Other)
  Sender: FDA-Public Use
  Company Number: US-SA-SAC20220207000567

PATIENT
  Age: 53 Year
  Sex: Female

DRUGS (1)
  1. ZANTAC [Suspect]
     Active Substance: RANITIDINE HYDROCHLORIDE
     Indication: Dyspepsia
     Dosage: UNK;QD
     Route: 065
     Dates: start: 199001, end: 200501

REACTIONS (2)
  - Breast cancer stage I [Recovering/Resolving]
  - Uterine cancer [Recovered/Resolved]

NARRATIVE: CASE EVENT DATE: 20100401
